FAERS Safety Report 7042105-5 (Version None)
Quarter: 2010Q4

REPORT INFORMATION
  Report Type: 
  Country: None (occurrence: None)
  Receive Date: 20101013
  Receipt Date: 20100621
  Transmission Date: 20110411
  Serious: No
  Sender: FDA-Public Use
  Company Number: US-ASTRAZENECA-2010SE29089

PATIENT
  Age: 76 Year
  Sex: Female
  Weight: 63.5 kg

DRUGS (8)
  1. SYMBICORT [Suspect]
     Indication: ASTHMA
     Dosage: 160/4.5 TWO PUFFS
     Route: 055
  2. SYMBICORT [Suspect]
     Indication: CHRONIC OBSTRUCTIVE PULMONARY DISEASE
     Dosage: 160/4.5 TWO PUFFS
     Route: 055
  3. SYMBICORT [Suspect]
     Dosage: 160/4.5 TWO PUFFS
     Route: 055
     Dates: start: 20100501
  4. SYMBICORT [Suspect]
     Dosage: 160/4.5 TWO PUFFS
     Route: 055
     Dates: start: 20100501
  5. NIFEDIPINE [Concomitant]
  6. PYRIDOSTIGMINE BROMIDE [Concomitant]
  7. PREDNISONE [Concomitant]
  8. TAMOXIFEN CITRATE [Concomitant]

REACTIONS (3)
  - ABDOMINAL PAIN UPPER [None]
  - DIARRHOEA [None]
  - DRUG DOSE OMISSION [None]
